FAERS Safety Report 8608115 (Version 4)
Quarter: 2014Q2

REPORT INFORMATION
  Report Type: Spontaneous
  Country: US (occurrence: US)
  Receive Date: 20120611
  Receipt Date: 20140422
  Transmission Date: 20141212
  Serious: Yes (Hospitalization)
  Sender: FDA-Public Use
  Company Number: US-ASTRAZENECA-2012SE35598

PATIENT
  Age: 59 Year
  Sex: Female
  Weight: 95.3 kg

DRUGS (44)
  1. NEXIUM [Suspect]
     Indication: DYSPEPSIA
     Route: 048
     Dates: start: 20060707, end: 20110715
  2. NEXIUM [Suspect]
     Indication: GASTROOESOPHAGEAL REFLUX DISEASE
     Route: 048
     Dates: start: 20060707, end: 20110715
  3. NEXIUM [Suspect]
     Indication: DYSPEPSIA
     Dosage: ONCE DAILY
     Route: 048
     Dates: start: 20060815, end: 20110715
  4. NEXIUM [Suspect]
     Indication: GASTROOESOPHAGEAL REFLUX DISEASE
     Dosage: ONCE DAILY
     Route: 048
     Dates: start: 20060815, end: 20110715
  5. NEXIUM [Suspect]
     Indication: DYSPEPSIA
     Route: 048
     Dates: start: 20070707
  6. NEXIUM [Suspect]
     Indication: GASTROOESOPHAGEAL REFLUX DISEASE
     Route: 048
     Dates: start: 20070707
  7. NEXIUM [Suspect]
     Indication: DYSPEPSIA
     Route: 048
     Dates: start: 20080416
  8. NEXIUM [Suspect]
     Indication: GASTROOESOPHAGEAL REFLUX DISEASE
     Route: 048
     Dates: start: 20080416
  9. GLYBURIDE [Concomitant]
     Dates: start: 20070706
  10. ALPRAZOLAM [Concomitant]
     Dates: start: 20070706
  11. SONATA [Concomitant]
     Dates: start: 20070706
  12. WARFARIN SODIUM [Concomitant]
     Dosage: 1 TO 5 MG
     Dates: start: 20070707
  13. WARFARIN SODIUM [Concomitant]
  14. ZONSAMIDE [Concomitant]
     Dates: start: 20070707
  15. FLUCONAZOLE [Concomitant]
     Dates: start: 20070707
  16. CIPROFLOXACIN HCL [Concomitant]
     Dates: start: 20070707
  17. METOLAZONE [Concomitant]
     Dates: start: 20070707
  18. FUROSEMIDE [Concomitant]
     Dates: start: 20070707
  19. OXYCONTIN [Concomitant]
     Dates: start: 20070701
  20. OXYCONTIN [Concomitant]
  21. MORPHINE SULFATE IR [Concomitant]
     Dates: start: 20070701
  22. ZOLPIDEM TARTRAET [Concomitant]
     Dates: start: 20070808
  23. LIPITOR [Concomitant]
     Dates: start: 20070707
  24. POTASSIUM CL [Concomitant]
     Dates: start: 20070707
  25. RANITIDINE/ZANTAC [Concomitant]
     Indication: GASTROOESOPHAGEAL REFLUX DISEASE
     Dates: start: 20110429, end: 20110715
  26. FAMOTIDINE/PEPCID [Concomitant]
     Indication: GASTROOESOPHAGEAL REFLUX DISEASE
     Dates: start: 20130501
  27. PROTONIX [Concomitant]
     Indication: GASTROOESOPHAGEAL REFLUX DISEASE
     Dates: start: 20050125
  28. PROTONIX [Concomitant]
     Indication: GASTROOESOPHAGEAL REFLUX DISEASE
     Dates: start: 20060212
  29. PROTONIX [Concomitant]
     Indication: GASTROOESOPHAGEAL REFLUX DISEASE
     Dates: start: 20060707
  30. PROTONIX [Concomitant]
     Indication: GASTROOESOPHAGEAL REFLUX DISEASE
     Dates: start: 20070915
  31. MILK OF MAGNESIA [Concomitant]
  32. PEPTOBISMOL [Concomitant]
  33. TUMS [Concomitant]
  34. ASCORBIC ACID [Concomitant]
  35. ALBUTEROL SULFATE [Concomitant]
  36. ASPIRIN [Concomitant]
  37. DOCUSATE SODIUM [Concomitant]
  38. ERGOCALCIFEROL [Concomitant]
  39. LEVOTHYROXINE SODIUM [Concomitant]
  40. SULFAMETHOX [Concomitant]
     Dosage: DAILY
  41. NITROSTAT [Concomitant]
  42. METFORMIN HCL [Concomitant]
  43. MUCINEX [Concomitant]
  44. LYRICA [Concomitant]

REACTIONS (21)
  - Wrist fracture [Unknown]
  - Femur fracture [Unknown]
  - Haematoma [Unknown]
  - Osteoporosis [Unknown]
  - Radius fracture [Unknown]
  - Multiple fractures [Unknown]
  - Tooth disorder [Unknown]
  - Musculoskeletal discomfort [Unknown]
  - Osteoarthritis [Unknown]
  - Chronic obstructive pulmonary disease [Unknown]
  - Peripheral vascular disorder [Unknown]
  - Diabetes mellitus [Unknown]
  - Neuropathy peripheral [Unknown]
  - Carpal tunnel syndrome [Unknown]
  - Musculoskeletal discomfort [Unknown]
  - Joint injury [Unknown]
  - Phlebitis [Unknown]
  - Limb discomfort [Unknown]
  - Headache [Unknown]
  - Ulna fracture [Unknown]
  - Depression [Unknown]
